FAERS Safety Report 5324181-0 (Version None)
Quarter: 2007Q2

REPORT INFORMATION
  Report Type: 
  Country: None (occurrence: None)
  Receive Date: 20070507
  Receipt Date: 20070419
  Transmission Date: 20071010
  Serious: Yes (Hospitalization)
  Sender: FDA-Public Use
  Company Number: DSA_29838_2007

PATIENT
  Age: 79 Year
  Sex: Female

DRUGS (6)
  1. MONO-TILDIEM (MONO-TILDIEM) 300 MG (NOT SPECIFIED) [Suspect]
     Dosage: (300 MG QD ORAL)
     Route: 048
     Dates: start: 20061113, end: 20061220
  2. ALUMINIUM ACETOTARTRATE (CATAPLASME) 1 DF [Suspect]
     Indication: ARTHRALGIA
     Dosage: (1 DF 1X)
     Dates: start: 20061216, end: 20061216
  3. ASPIRIN [Concomitant]
  4. VASTEN [Concomitant]
  5. PERINDOPRIL [Concomitant]
  6. VAGOSTABYL [Concomitant]

REACTIONS (7)
  - ARTHRALGIA [None]
  - JOINT EFFUSION [None]
  - OSTEOARTHRITIS [None]
  - RASH MACULO-PAPULAR [None]
  - STAPHYLOCOCCAL INFECTION [None]
  - TOXIC SKIN ERUPTION [None]
  - WOUND [None]
